FAERS Safety Report 7950731-1 (Version None)
Quarter: 2011Q4

REPORT INFORMATION
  Report Type: 
  Country: None (occurrence: None)
  Receive Date: 20111123
  Receipt Date: 20111109
  Transmission Date: 20120403
  Serious: Yes (Hospitalization)
  Sender: FDA-Public Use
  Company Number: UTC-012053

PATIENT
  Age: 40 Year
  Sex: Female

DRUGS (6)
  1. COUMADIN [Concomitant]
  2. DIURETICS [Concomitant]
  3. REMODULIN [Suspect]
     Indication: COR PULMONALE CHRONIC
     Dosage: 102.24 UG/KG (0.071 UG/KG, 1 IN 1 MIN), INTRAVENOUS
     Route: 042
     Dates: start: 20100805
  4. TRACLEER [Concomitant]
  5. DIGOXIN [Concomitant]
  6. REVATIO [Concomitant]

REACTIONS (1)
  - RIGHT VENTRICULAR FAILURE [None]
